FAERS Safety Report 5596864-9 (Version None)
Quarter: 2008Q1

REPORT INFORMATION
  Report Type: 
  Country: None (occurrence: None)
  Receive Date: 20080119
  Receipt Date: 20080107
  Transmission Date: 20080703
  Serious: Yes (Other)
  Sender: FDA-Public Use
  Company Number: US-PFIZER INC-2008004635

PATIENT
  Sex: Female
  Weight: 77.272 kg

DRUGS (9)
  1. CHANTIX [Suspect]
     Indication: SMOKING CESSATION THERAPY
     Dosage: TEXT:EVERYDAY
     Route: 048
  2. ALPRAZOLAM [Suspect]
     Indication: ANXIOLYTIC THERAPY
  3. PRILOSEC [Concomitant]
  4. LANOXIN [Concomitant]
  5. ZETIA [Concomitant]
  6. COMBIVENT [Concomitant]
     Route: 055
  7. COUMADIN [Concomitant]
  8. COUMADIN [Concomitant]
  9. LEVOTHYROXINE SODIUM [Concomitant]

REACTIONS (2)
  - HALLUCINATION [None]
  - HOMICIDAL IDEATION [None]
